FAERS Safety Report 12173523 (Version 1)
Quarter: 2016Q1

REPORT INFORMATION
  Report Type: Spontaneous
  Country: US (occurrence: US)
  Receive Date: 20160311
  Receipt Date: 20160311
  Transmission Date: 20160526
  Serious: No
  Sender: FDA-Public Use
  Company Number: US-ASTRAZENECA-2016SE18371

PATIENT
  Sex: Female
  Weight: 61.2 kg

DRUGS (2)
  1. SYMBICORT [Suspect]
     Active Substance: BUDESONIDE\FORMOTEROL FUMARATE DIHYDRATE
     Indication: CHRONIC OBSTRUCTIVE PULMONARY DISEASE
     Dosage: 160-4.5MCG TWO PUFFS TWICE A DAY, TWO TIMES A DAY
     Route: 055
  2. VITAMINS NOS [Concomitant]
     Active Substance: VITAMINS
     Indication: GENERAL PHYSICAL HEALTH DETERIORATION
     Dosage: DAILY
     Route: 048

REACTIONS (6)
  - Dyspnoea [Unknown]
  - Drug effect delayed [Unknown]
  - Circumstance or information capable of leading to device use error [Unknown]
  - Device use error [Unknown]
  - Extra dose administered [Unknown]
  - Gait disturbance [Unknown]
